FAERS Safety Report 7809745-4 (Version None)
Quarter: 2011Q4

REPORT INFORMATION
  Report Type: 
  Country: None (occurrence: None)
  Receive Date: 20111006
  Receipt Date: 20110928
  Transmission Date: 20120403
  Serious: Yes (Other)
  Sender: FDA-Public Use
  Company Number: 2011SP043592

PATIENT
  Sex: Female

DRUGS (1)
  1. IMPLANON [Suspect]
     Indication: CONTRACEPTION
     Dosage: 1 DF;SBDE
     Route: 059
     Dates: start: 20110818, end: 20110901

REACTIONS (4)
  - PRODUCT STERILITY LACKING [None]
  - APPLICATION SITE NECROSIS [None]
  - PURULENT DISCHARGE [None]
  - IMPLANT SITE CELLULITIS [None]
